FAERS Safety Report 8616417-5 (Version None)
Quarter: 2012Q3

REPORT INFORMATION
  Report Type: 
  Country: None (occurrence: None)
  Receive Date: 20120823
  Receipt Date: 20071110
  Transmission Date: 20120928
  Serious: Yes (Hospitalization, Other)
  Sender: FDA-Public Use
  Company Number: CHPA2007US11351

PATIENT
  Sex: Female
  Weight: 41.723 kg

DRUGS (9)
  1. CYMBALTA [Concomitant]
     Indication: BACK PAIN
  2. ASPIRIN [Concomitant]
     Indication: PROPHYLAXIS
  3. DRUG THERAPY NOS [Concomitant]
  4. BENEFIBER CHEWABLE TABLET ORANGE [Suspect]
     Indication: GLUCOSE TOLERANCE IMPAIRED
     Dosage: 1-3 TABS 5 TIMES A DAY
     Route: 048
     Dates: start: 20070708, end: 20070719
  5. METFORMIN HCL [Concomitant]
     Indication: GLUCOSE TOLERANCE IMPAIRED
     Dates: start: 20070401
  6. LIPITOR [Concomitant]
     Indication: BLOOD CHOLESTEROL INCREASED
     Dosage: UNK, UNK
     Dates: start: 20020101
  7. VITAMIN D [Concomitant]
  8. NUTRITION SUPPLEMENTS [Suspect]
     Dosage: 1 TO 3 TABS 5 TIMES A DAY
  9. BENEFIBER CHEWABLE TABLET ORANGE [Suspect]
     Dosage: 3 DF, TID
     Route: 048
     Dates: start: 20070720, end: 20070730

REACTIONS (11)
  - ABDOMINAL PAIN [None]
  - CHANGE OF BOWEL HABIT [None]
  - ABDOMINAL DISTENSION [None]
  - CONSTIPATION [None]
  - DECREASED APPETITE [None]
  - DISABILITY [None]
  - VOMITING [None]
  - NAUSEA [None]
  - INTESTINAL OBSTRUCTION [None]
  - ILEUS PARALYTIC [None]
  - HYPOPHAGIA [None]
